FAERS Safety Report 8620880-3 (Version None)
Quarter: 2012Q3

REPORT INFORMATION
  Report Type: 
  Country: None (occurrence: None)
  Receive Date: 20120820
  Receipt Date: 20120820
  Transmission Date: 20120928
  Serious: Yes (Life-Threatening)
  Sender: FDA-Public Use
  Company Number: None

PATIENT
  Age: 50 Year
  Sex: Female
  Weight: 62.6 kg

DRUGS (4)
  1. MYCOPHENOLATE MEFETIL [Suspect]
     Indication: LIVER TRANSPLANT REJECTION
     Dosage: 1000MG TWICE DAILY PO
     Route: 048
     Dates: start: 20120220, end: 20120813
  2. MYCOPHENOLATE MEFETIL [Suspect]
     Indication: PROPHYLAXIS
     Dosage: 1000MG TWICE DAILY PO
     Route: 048
     Dates: start: 20120220, end: 20120813
  3. CYCLOSPORINE [Suspect]
     Indication: LIVER TRANSPLANT REJECTION
     Dosage: 225MG TWICE DAILY PO
     Route: 048
     Dates: start: 20120220, end: 20120816
  4. CYCLOSPORINE [Suspect]
     Indication: PROPHYLAXIS
     Dosage: 225MG TWICE DAILY PO
     Route: 048
     Dates: start: 20120220, end: 20120816

REACTIONS (1)
  - PROGRESSIVE MULTIFOCAL LEUKOENCEPHALOPATHY [None]
